FAERS Safety Report 16553300 (Version 1)
Quarter: 2019Q3

REPORT INFORMATION
  Report Type: Spontaneous
  Country: SE (occurrence: SE)
  Receive Date: 20190710
  Receipt Date: 20190710
  Transmission Date: 20191004
  Serious: Yes (Hospitalization)
  Sender: FDA-Public Use
  Company Number: SE-TEVA-2019-SE-1075054

PATIENT
  Age: 29 Year
  Sex: Male

DRUGS (1)
  1. DIMOR [Suspect]
     Active Substance: LOPERAMIDE
     Route: 048
     Dates: end: 201906

REACTIONS (9)
  - Malaise [Unknown]
  - Electrocardiogram QRS complex prolonged [Recovering/Resolving]
  - Electrocardiogram QT prolonged [Unknown]
  - Bradycardia [Unknown]
  - Cardiac arrest [Unknown]
  - Blood pressure decreased [Recovered/Resolved]
  - Headache [Unknown]
  - Overdose [Unknown]
  - Ventricular arrhythmia [Recovering/Resolving]

NARRATIVE: CASE EVENT DATE: 201906
